FAERS Safety Report 7675749-8 (Version None)
Quarter: 2011Q3

REPORT INFORMATION
  Report Type: 
  Country: None (occurrence: None)
  Receive Date: 20110810
  Receipt Date: 20110711
  Transmission Date: 20111222
  Serious: No
  Sender: FDA-Public Use
  Company Number: US-TYCO HEALTHCARE/MALLINCKRODT-T201101407

PATIENT
  Sex: Male

DRUGS (2)
  1. PENNSAID [Suspect]
  2. TRAMADOL HCL [Suspect]
     Dosage: UNK

REACTIONS (2)
  - HEPATIC ENZYME INCREASED [None]
  - HEPATITIS [None]
